FAERS Safety Report 8801085 (Version 2)
Quarter: 2012Q4

REPORT INFORMATION
  Report Type: 
  Country: JP (occurrence: JP)
  Receive Date: 20120921
  Receipt Date: 20121001
  Transmission Date: 20130627
  Serious: No
  Sender: FDA-Public Use
  Company Number: JP-JNJFOC-20120907322

PATIENT

DRUGS (1)
  1. TRAMCET [Suspect]
     Indication: PAIN
     Dosage: p.r.n (as needed)
     Route: 048

REACTIONS (2)
  - Rheumatoid factor increased [Unknown]
  - Inappropriate schedule of drug administration [Unknown]
